FAERS Safety Report 22610280 (Version 1)
Quarter: 2023Q2

REPORT INFORMATION
  Report Type: Spontaneous
  Country: DE (occurrence: None)
  Receive Date: 20230616
  Receipt Date: 20230616
  Transmission Date: 20230722
  Serious: Yes (Death)
  Sender: FDA-Public Use
  Company Number: 2023A138226

PATIENT
  Age: 84 Year
  Sex: Male

DRUGS (1)
  1. DAPAGLIFLOZIN [Suspect]
     Active Substance: DAPAGLIFLOZIN
     Dosage: MORNING
     Route: 048

REACTIONS (8)
  - General physical health deterioration [Fatal]
  - Dyspnoea [Fatal]
  - Cyanosis [Fatal]
  - Pulmonary embolism [Fatal]
  - Fibrin D dimer increased [Fatal]
  - Cardiac failure [Fatal]
  - Peripheral coldness [Fatal]
  - Movement disorder [Fatal]

NARRATIVE: CASE EVENT DATE: 20221001
